FAERS Safety Report 9063748 (Version 1)
Quarter: 2013Q1

REPORT INFORMATION
  Report Type: Report from Study
  Country: US (occurrence: US)
  Receive Date: 20130131
  Receipt Date: 20130131
  Transmission Date: 20140127
  Serious: No
  Sender: FDA-Public Use
  Company Number: US-ABBOTT-12P-163-0998700-00

PATIENT
  Age: 39 Year
  Sex: Male

DRUGS (2)
  1. HUMIRA [Suspect]
     Indication: ANKYLOSING SPONDYLITIS
     Dosage: INITIAL DOSE
     Route: 058
     Dates: start: 20121018, end: 20121018
  2. MOBIC [Concomitant]
     Indication: PAIN
     Dosage: 1 DAILY
     Route: 048

REACTIONS (3)
  - Feeling abnormal [Not Recovered/Not Resolved]
  - Dizziness [Not Recovered/Not Resolved]
  - Dysphemia [Not Recovered/Not Resolved]
